FAERS Safety Report 19555953 (Version 2)
Quarter: 2021Q3

REPORT INFORMATION
  Report Type: Spontaneous
  Country: US (occurrence: US)
  Receive Date: 20210714
  Receipt Date: 20210729
  Transmission Date: 20211014
  Serious: No
  Sender: FDA-Public Use
  Company Number: US-GLAXOSMITHKLINE-US2021149276

PATIENT
  Sex: Female

DRUGS (3)
  1. ZEJULA [Suspect]
     Active Substance: NIRAPARIB
     Dosage: 100 MG, QD
     Route: 048
     Dates: start: 20210608
  2. ZEJULA [Suspect]
     Active Substance: NIRAPARIB
     Indication: OVARIAN CANCER
     Dosage: UNK
     Dates: start: 202106
  3. ZEJULA [Suspect]
     Active Substance: NIRAPARIB
     Dosage: 100 MG

REACTIONS (9)
  - Dizziness [Not Recovered/Not Resolved]
  - Feeling jittery [Unknown]
  - Sinus tachycardia [Unknown]
  - Feeling abnormal [Unknown]
  - Chest discomfort [Not Recovered/Not Resolved]
  - Cardiovascular deconditioning [Unknown]
  - Blood pressure increased [Unknown]
  - Abdominal pain upper [Unknown]
  - Tremor [Unknown]
